FAERS Safety Report 8517129-9 (Version None)
Quarter: 2012Q3

REPORT INFORMATION
  Report Type: 
  Country: None (occurrence: None)
  Receive Date: 20120718
  Receipt Date: 20120709
  Transmission Date: 20120928
  Serious: Yes (Other)
  Sender: FDA-Public Use
  Company Number: IT-BRISTOL-MYERS SQUIBB COMPANY-16761439

PATIENT

DRUGS (2)
  1. ERBITUX [Suspect]
     Indication: COLON CANCER
     Dosage: 1DF= 425-UNITS NOS (433D) INTERR 15OCT08-THEN REINTRODUCED
     Route: 042
     Dates: start: 20070809
  2. IRINOTECAN HCL [Concomitant]
     Dosage: 1DF= 100-UNITS NOS
     Route: 042
     Dates: start: 20070809, end: 20071112

REACTIONS (2)
  - THROMBOCYTOPENIA [None]
  - HYPERPYREXIA [None]
